FAERS Safety Report 9975180 (Version 1)
Quarter: 2014Q1

REPORT INFORMATION
  Report Type: Report from Study
  Country: US (occurrence: US)
  Receive Date: 20140306
  Receipt Date: 20140306
  Transmission Date: 20141002
  Serious: No
  Sender: FDA-Public Use
  Company Number: US-ABBVIE-13P-163-1161470-00

PATIENT
  Age: 64 Year
  Sex: Female

DRUGS (13)
  1. HUMIRA [Suspect]
     Indication: RHEUMATOID ARTHRITIS
     Dates: start: 20130918
  2. HUMIRA [Suspect]
     Dates: start: 20131002, end: 20131002
  3. NEXIUM [Concomitant]
     Indication: DYSPEPSIA
  4. SYNTHROID [Concomitant]
     Indication: HYPOTHYROIDISM
  5. LAMOTRIGINE [Concomitant]
     Indication: BIPOLAR DISORDER
  6. LEXAPRO [Concomitant]
     Indication: BIPOLAR I DISORDER
  7. DIOVAN [Concomitant]
     Indication: HYPERTENSION
  8. VITAMIN D [Concomitant]
     Indication: PRODUCT USED FOR UNKNOWN INDICATION
  9. ALLEGRA [Concomitant]
     Indication: HYPERSENSITIVITY
     Dosage: DAILY
  10. AMITRIPTYLINE [Concomitant]
     Indication: CYSTITIS INTERSTITIAL
     Dosage: AT BEDTIME
  11. HYDROCODONE [Concomitant]
     Indication: PAIN
  12. LORAZEPAM [Concomitant]
     Indication: ANXIETY
  13. XALATAN [Concomitant]
     Indication: GLAUCOMA
     Dosage: EYE DROPS, EACH EYE AT NIGHT
     Route: 047

REACTIONS (5)
  - Skin exfoliation [Not Recovered/Not Resolved]
  - Nausea [Not Recovered/Not Resolved]
  - Cough [Not Recovered/Not Resolved]
  - Abdominal distension [Not Recovered/Not Resolved]
  - Abdominal pain upper [Not Recovered/Not Resolved]
